FAERS Safety Report 7080349-7 (Version None)
Quarter: 2010Q4

REPORT INFORMATION
  Report Type: 
  Country: None (occurrence: None)
  Receive Date: 20101103
  Receipt Date: 20101025
  Transmission Date: 20110411
  Serious: Yes (Hospitalization, Other)
  Sender: FDA-Public Use
  Company Number: US-JNJFOC-20100703640

PATIENT

DRUGS (2)
  1. LEVAQUIN [Suspect]
     Indication: HYPOGAMMAGLOBULINAEMIA
     Route: 048
  2. PREDNISONE [Suspect]
     Indication: PRODUCT USED FOR UNKNOWN INDICATION
     Route: 065

REACTIONS (2)
  - MENISCUS LESION [None]
  - TENDON RUPTURE [None]
